FAERS Safety Report 9346955 (Version 2)
Quarter: 2013Q2

REPORT INFORMATION
  Report Type: Spontaneous
  Country: US (occurrence: US)
  Receive Date: 20130613
  Receipt Date: 20130626
  Transmission Date: 20140414
  Serious: Yes (Death)
  Sender: FDA-Public Use
  Company Number: US-ACTELION-A-NJ2013-84428

PATIENT
  Age: 69 Year
  Sex: Female

DRUGS (6)
  1. TRACLEER [Suspect]
     Indication: PULMONARY ARTERIAL HYPERTENSION
     Dosage: UNK
     Route: 048
     Dates: end: 20130523
  2. COUMADIN [Concomitant]
  3. REVATIO [Concomitant]
  4. OXYGEN [Concomitant]
  5. LASIX [Concomitant]
  6. POTASSIUM [Concomitant]

REACTIONS (1)
  - Death [Fatal]
